FAERS Safety Report 21266879 (Version 1)
Quarter: 2022Q3

REPORT INFORMATION
  Report Type: Spontaneous
  Country: US (occurrence: US)
  Receive Date: 20220829
  Receipt Date: 20220829
  Transmission Date: 20221026
  Serious: Yes (Other)
  Sender: FDA-Public Use
  Company Number: US-FreseniusKabi-FK202211814

PATIENT
  Age: 51 Year
  Sex: Female

DRUGS (2)
  1. PROPOFOL [Suspect]
     Active Substance: PROPOFOL
     Indication: Sedation
     Dosage: TOTAL DOSE OF 180MG
     Route: 042
  2. BENZOCAINE [Suspect]
     Active Substance: BENZOCAINE
     Indication: Local anaesthesia
     Route: 065

REACTIONS (1)
  - Atelectasis [Recovering/Resolving]
